FAERS Safety Report 10183457 (Version 5)
Quarter: 2016Q4

REPORT INFORMATION
  Report Type: Report from Study
  Country: US (occurrence: US)
  Receive Date: 20140520
  Receipt Date: 20161028
  Transmission Date: 20170206
  Serious: No
  Sender: FDA-Public Use
  Company Number: US-VERTEX PHARMACEUTICALS INC-2014-002326

PATIENT
  Age: 7 Year
  Sex: Female

DRUGS (8)
  1. URSODIOL. [Concomitant]
     Active Substance: URSODIOL
  2. KALYDECO [Suspect]
     Active Substance: IVACAFTOR
     Indication: CYSTIC FIBROSIS
     Dosage: 150 MG, BID
     Route: 048
     Dates: start: 20140317, end: 201412
  3. VITAMIN D [Concomitant]
     Active Substance: CHOLECALCIFEROL
  4. ERYTHROMYCIN. [Concomitant]
     Active Substance: ERYTHROMYCIN
     Indication: BLOOD TEST ABNORMAL
  5. DORNASE [Concomitant]
  6. CREON [Concomitant]
     Active Substance: PANCRELIPASE AMYLASE\PANCRELIPASE LIPASE\PANCRELIPASE PROTEASE
  7. MVI [Concomitant]
     Active Substance: VITAMINS
  8. KALYDECO [Suspect]
     Active Substance: IVACAFTOR
     Dosage: 1 DF, BID
     Route: 048
     Dates: start: 201412

REACTIONS (3)
  - Bronchial secretion retention [Unknown]
  - Treatment noncompliance [Recovered/Resolved]
  - Alanine aminotransferase increased [Not Recovered/Not Resolved]

NARRATIVE: CASE EVENT DATE: 20150706
